FAERS Safety Report 20729344 (Version 9)
Quarter: 2022Q4

REPORT INFORMATION
  Report Type: Report from Study
  Country: TW (occurrence: None)
  Receive Date: 20220420
  Receipt Date: 20221110
  Transmission Date: 20230113
  Serious: Yes (Hospitalization)
  Sender: FDA-Public Use
  Company Number: TW-ROCHE-3072051

PATIENT
  Age: 55 Year
  Sex: Female
  Weight: 57.5 kg

DRUGS (50)
  1. ATEZOLIZUMAB [Suspect]
     Active Substance: ATEZOLIZUMAB
     Indication: Non-small cell lung cancer metastatic
     Dosage: DATE OF LAST DOSE PRIOR TO ADVERSE EVENT/SPECIAL SITUATION: 03/MAR/2022
     Route: 041
     Dates: start: 20200805, end: 20220331
  2. BEVACIZUMAB [Suspect]
     Active Substance: BEVACIZUMAB
     Indication: Non-small cell lung cancer metastatic
     Dosage: DATE OF LAST DOSE PRIOR TO ADVERSE EVENT/SPECIAL SITAUTION: 03/MAR/2022
     Route: 042
     Dates: start: 20200805, end: 20220331
  3. PEMETREXED [Suspect]
     Active Substance: PEMETREXED
     Indication: Non-small cell lung cancer metastatic
     Route: 065
  4. RASITOL [Concomitant]
     Dates: start: 20220324, end: 20220324
  5. LASIX [Concomitant]
     Active Substance: FUROSEMIDE
     Dates: start: 20211028
  6. LEVOTHYROXINE [Concomitant]
     Active Substance: LEVOTHYROXINE
     Dates: start: 20211130
  7. ATIVAN [Concomitant]
     Active Substance: LORAZEPAM
     Dates: start: 20211028
  8. RADI-K [Concomitant]
     Dates: start: 20211028
  9. ALDACTONE [Concomitant]
     Active Substance: SPIRONOLACTONE
     Dates: start: 20220210
  10. FLEXBUMIN [Concomitant]
     Active Substance: ALBUMIN HUMAN
     Dates: start: 20220324, end: 20220324
  11. FLEXBUMIN [Concomitant]
     Active Substance: ALBUMIN HUMAN
     Dates: start: 20220407, end: 20220409
  12. ACETAMINOPHEN [Concomitant]
     Active Substance: ACETAMINOPHEN
     Dates: start: 20220407, end: 202204
  13. ACETAMINOPHEN [Concomitant]
     Active Substance: ACETAMINOPHEN
     Route: 048
     Dates: start: 20220802, end: 20220807
  14. TRAMADOL HCL [Concomitant]
     Active Substance: TRAMADOL HYDROCHLORIDE
     Dosage: 100 MG/2 ML
     Dates: start: 20220407, end: 20220421
  15. UTRAPHEN [Concomitant]
     Dosage: TRAMADOL HCL 37.5 MG,?ACETAMINOPHEN 325 MG
     Dates: start: 20220418, end: 202204
  16. OK-432 [Concomitant]
     Active Substance: OK-432
     Dosage: 5 KE/VIAL
     Dates: start: 20210413, end: 20210413
  17. LIDOCAINE HYDROCHLORIDE [Concomitant]
     Active Substance: LIDOCAINE HYDROCHLORIDE
     Dosage: 2%XYLOCAINE IV 100 MG/5 ML /AMP
     Dates: start: 20220413, end: 20220413
  18. HEPARIN SODIUM [Concomitant]
     Active Substance: HEPARIN SODIUM
     Dosage: 25000 U/5 ML /VIAL
     Dates: start: 20220407, end: 20220422
  19. ESOMEPRAZOLE MAGNESIUM [Concomitant]
     Active Substance: ESOMEPRAZOLE MAGNESIUM
     Dates: start: 20220419, end: 202204
  20. SENNOSIDES A AND B [Concomitant]
     Active Substance: SENNOSIDES A AND B
     Dates: start: 20220409, end: 202204
  21. METOCLOPRAMIDE HYDROCHLORIDE [Concomitant]
     Active Substance: METOCLOPRAMIDE HYDROCHLORIDE
     Dosage: 10 MG/2 ML /AMP
     Dates: start: 20220409, end: 20220421
  22. PROCHLORPERAZINE MALEATE [Concomitant]
     Active Substance: PROCHLORPERAZINE MALEATE
     Dates: start: 20220409, end: 202204
  23. ACETYLCYSTEINE [Concomitant]
     Active Substance: ACETYLCYSTEINE
     Dates: start: 20220421, end: 202204
  24. BISOPROLOL FUMARATE [Concomitant]
     Active Substance: BISOPROLOL FUMARATE
     Dosage: 1.25 MG/TAB
     Dates: start: 20220504
  25. MORPHINE HYDROCHLORIDE [Concomitant]
     Active Substance: MORPHINE HYDROCHLORIDE
     Dosage: 10 MG/1 ML /AMP
     Dates: start: 20220509, end: 20220608
  26. PREDNISOLONE [Concomitant]
     Active Substance: PREDNISOLONE
     Dosage: 5 MG/TAB
     Dates: start: 20220531
  27. CELECOXIB [Concomitant]
     Active Substance: CELECOXIB
     Dosage: 200 MG/CAP
     Dates: start: 20220617, end: 20220628
  28. CELECOXIB [Concomitant]
     Active Substance: CELECOXIB
     Route: 048
     Dates: start: 20220803, end: 20220807
  29. CEFAZOLIN SODIUM [Concomitant]
     Active Substance: CEFAZOLIN SODIUM
     Dosage: 1000 MG/VIAL
     Dates: start: 20220615, end: 20220615
  30. CEFAZOLIN SODIUM [Concomitant]
     Active Substance: CEFAZOLIN SODIUM
     Dates: start: 20220803, end: 20220803
  31. UNASYN [Concomitant]
     Active Substance: AMPICILLIN SODIUM\SULBACTAM SODIUM
     Dates: start: 20220803, end: 20220806
  32. DULCOLAX (BISACODYL) [Concomitant]
     Active Substance: BISACODYL
     Route: 048
     Dates: start: 20220803, end: 20220807
  33. BROWN MIXTURE LIQUID [Concomitant]
     Dosage: DOSE- 120 ML /BTL
     Dates: start: 20220803, end: 20220807
  34. REGROW [DEXTROMETHORPHAN HYDROBROMIDE] [Concomitant]
     Route: 048
     Dates: start: 20220803
  35. ALLEGRA [Concomitant]
     Active Substance: FEXOFENADINE HYDROCHLORIDE
     Route: 048
     Dates: start: 20220803, end: 20220807
  36. ALLEGRA [Concomitant]
     Active Substance: FEXOFENADINE HYDROCHLORIDE
     Route: 048
     Dates: start: 20220803
  37. ZOFRAN [Concomitant]
     Active Substance: ONDANSETRON HYDROCHLORIDE
     Dosage: DOSE- 8 MG/4 ML /AMP
     Dates: start: 20220803, end: 20220803
  38. UTRAPHEN [Concomitant]
     Dosage: 1 TABLET
     Route: 048
     Dates: start: 20220803, end: 20220804
  39. SHINCORT [Concomitant]
     Dosage: DOSE- 40 MG/1 ML /AMP
     Dates: start: 20220803, end: 20220803
  40. FLEXBUMIN [Concomitant]
     Active Substance: ALBUMIN HUMAN
     Dates: start: 20220804, end: 20220805
  41. CURAM [AMOXICILLIN;CLAVULANATE POTASSIUM] [Concomitant]
     Route: 048
     Dates: start: 20220807
  42. XANAX [Concomitant]
     Active Substance: ALPRAZOLAM
     Dates: start: 20220807
  43. BISOPROLOL FUMARATE [Concomitant]
     Active Substance: BISOPROLOL FUMARATE
     Dosage: 1.25 MG/TAB
     Dates: start: 20220504
  44. MAGNESIUM OXIDE [Concomitant]
     Active Substance: MAGNESIUM OXIDE
     Dosage: 250 MG/TAB*2
     Dates: start: 20220920
  45. LACTULOSE [Concomitant]
     Active Substance: LACTULOSE
     Dates: start: 20220926
  46. NOVAMIN (TAIWAN) [Concomitant]
     Dates: start: 20220921, end: 20220921
  47. SEROQUEL [Concomitant]
     Active Substance: QUETIAPINE FUMARATE
  48. PREDONINE [Concomitant]
     Active Substance: PREDNISOLONE
     Dosage: 5 MG/TAB*3
     Dates: start: 20220919
  49. FENOTEROL HYDROBROMIDE [Concomitant]
     Active Substance: FENOTEROL HYDROBROMIDE
     Dates: start: 20220927
  50. ACTEIN [Concomitant]
     Dates: start: 20220923

REACTIONS (2)
  - Pleural effusion [Not Recovered/Not Resolved]
  - Pleurisy [Not Recovered/Not Resolved]

NARRATIVE: CASE EVENT DATE: 20210413
